FAERS Safety Report 8169910-6 (Version None)
Quarter: 2012Q1

REPORT INFORMATION
  Report Type: 
  Country: None (occurrence: None)
  Receive Date: 20120228
  Receipt Date: 20120223
  Transmission Date: 20120608
  Serious: Yes (Hospitalization)
  Sender: FDA-Public Use
  Company Number: IT-PFIZER INC-2012050551

PATIENT
  Age: 46 Year
  Sex: Male

DRUGS (6)
  1. MEDROL [Suspect]
     Indication: ANKYLOSING SPONDYLITIS
     Dosage: 4 MG, 1X/DAY
     Route: 048
     Dates: start: 20050101
  2. HUMIRA [Suspect]
     Indication: ANKYLOSING SPONDYLITIS
     Dosage: 40 MG, CYCLIC
     Route: 058
     Dates: start: 20080731, end: 20111220
  3. LANSOPRAZOLE [Concomitant]
     Dosage: 30 MG, UNK
     Route: 048
  4. ALLOPURINOL [Concomitant]
     Dosage: 300 MG, UNK
     Route: 048
  5. INDOMETHACIN [Concomitant]
     Dosage: 75 MG, UNK
     Route: 048
  6. COLCHICINA ^LIRCA^ [Concomitant]
     Dosage: 1 MG, UNK
     Route: 048

REACTIONS (4)
  - FASCIITIS [None]
  - PAIN [None]
  - SWELLING [None]
  - ARTHRITIS [None]
